FAERS Safety Report 5524803-5 (Version None)
Quarter: 2007Q4

REPORT INFORMATION
  Report Type: 
  Country: None (occurrence: None)
  Receive Date: 20071116
  Receipt Date: 20071031
  Transmission Date: 20080405
  Serious: Yes (Life-Threatening, Hospitalization)
  Sender: FDA-Public Use
  Company Number: B0391407A

PATIENT
  Age: 43 Year
  Sex: Male

DRUGS (8)
  1. ACETAMINOPHEN [Suspect]
     Dosage: 16 GRAM(S) / SINGLE / ORAL
     Route: 048
  2. ASPIRIN [Suspect]
     Dosage: 7.5 GRAM(S) / SINGLE DOSE / ORAL
     Route: 048
  3. AMLODIPINE [Suspect]
     Dosage: 10 MG / 560 MG/ ORAL
     Route: 048
  4. FLUOXETINE [Suspect]
     Dosage: 600 MG / SINGLE DOSE / ORAL
     Route: 048
  5. FOLIC ACID TABLET (FOLIC ACID) [Suspect]
     Dosage: 30 TABLET / SINGLE DOSE / ORAL
     Route: 048
  6. CITALOPRAM (FORMULATION UNKNOWN) (CITALOPRAM) [Suspect]
     Dosage: 280 MG / SINGLE DOSE / ORAL
     Route: 048
  7. PERINDOPRIL (FORMULATION UNKNOWN) (PERINDOPRIL) [Suspect]
     Dosage: 120 MG /  SINGLE DOSE / ORAL
     Route: 048
  8. ETHANOL (FORMULATION UNKNOWN) (ALCOHOL) [Suspect]
     Dosage: ORAL
     Route: 048

REACTIONS (9)
  - DEPRESSED LEVEL OF CONSCIOUSNESS [None]
  - FALL [None]
  - HYPOKALAEMIA [None]
  - HYPOTENSION [None]
  - METABOLIC ACIDOSIS [None]
  - MULTIPLE DRUG OVERDOSE INTENTIONAL [None]
  - NO THERAPEUTIC RESPONSE [None]
  - RENAL FAILURE [None]
  - URINARY RETENTION [None]
